FAERS Safety Report 6749916-1 (Version None)
Quarter: 2010Q2

REPORT INFORMATION
  Report Type: 
  Country: None (occurrence: None)
  Receive Date: 20100601
  Receipt Date: 20100526
  Transmission Date: 20101027
  Serious: Yes (Other)
  Sender: FDA-Public Use
  Company Number: DE-BRISTOL-MYERS SQUIBB COMPANY-15124696

PATIENT
  Age: 73 Year
  Sex: Female

DRUGS (7)
  1. ABILIFY [Suspect]
     Route: 048
     Dates: start: 20100508, end: 20100514
  2. SIMVASTATIN [Concomitant]
     Dosage: COATED TABLETS
     Route: 048
  3. TORASEMIDE [Concomitant]
     Dosage: TABLETS
     Route: 048
  4. METFORMIN HCL [Concomitant]
  5. AMARYL [Concomitant]
  6. ASPIRIN [Concomitant]
  7. VENLAFAXINE HCL [Concomitant]
     Dosage: TREVILOR RET

REACTIONS (2)
  - HYPERTENSION [None]
  - HYPERTENSIVE CRISIS [None]
